FAERS Safety Report 13639682 (Version 1)
Quarter: 2017Q2

REPORT INFORMATION
  Report Type: Spontaneous
  Country: US (occurrence: US)
  Receive Date: 20170609
  Receipt Date: 20170609
  Transmission Date: 20170830
  Serious: No
  Sender: FDA-Public Use
  Company Number: US-ROCHE-1394091

PATIENT
  Sex: Male

DRUGS (3)
  1. KLONOPIN [Suspect]
     Active Substance: CLONAZEPAM
     Route: 048
  2. KLONOPIN [Suspect]
     Active Substance: CLONAZEPAM
     Indication: SPINAL CORD INJURY
     Route: 048
  3. CLONAZEPAM. [Suspect]
     Active Substance: CLONAZEPAM
     Indication: SPINAL CORD INJURY
     Route: 065

REACTIONS (8)
  - Muscle spasms [Unknown]
  - Spondylitis [Unknown]
  - Drug use disorder [Unknown]
  - Pain [Unknown]
  - Muscle spasticity [Unknown]
  - Dyspnoea [Unknown]
  - Gait disturbance [Unknown]
  - Hypotonia [Unknown]
